FAERS Safety Report 20143652 (Version 1)
Quarter: 2021Q4

REPORT INFORMATION
  Report Type: Spontaneous
  Country: AU (occurrence: AU)
  Receive Date: 20211203
  Receipt Date: 20211203
  Transmission Date: 20220303
  Serious: Yes (Life-Threatening, Hospitalization, Other)
  Sender: FDA-Public Use
  Company Number: AU-MLMSERVICE-20211117-3219325-1

PATIENT
  Age: 39 Year
  Sex: Female

DRUGS (2)
  1. LEVOTHYROXINE [Suspect]
     Active Substance: LEVOTHYROXINE
  2. DESVENLAFAXINE [Concomitant]
     Active Substance: DESVENLAFAXINE

REACTIONS (5)
  - Intentional overdose [Unknown]
  - Cardiomegaly [Recovered/Resolved]
  - Hyperthyroidism [Recovered/Resolved]
  - Cardiomyopathy [Recovered/Resolved]
  - Thyrotoxic crisis [Recovered/Resolved]
